FAERS Safety Report 7986919 (Version 2)
Quarter: 2013Q4

REPORT INFORMATION
  Report Type: Spontaneous
  Country: US (occurrence: US)
  Receive Date: 20110613
  Receipt Date: 20131210
  Transmission Date: 20140711
  Serious: No
  Sender: FDA-Public Use
  Company Number: US-JNJFOC-20110602898

PATIENT
  Age: 99 Year
  Sex: Female

DRUGS (1)
  1. SANDOZ FENTANYL TRANSDERMAL SYSTEM [Suspect]
     Indication: COMPRESSION FRACTURE
     Dosage: NDC 0781-7241-55
     Route: 062
     Dates: start: 201010

REACTIONS (5)
  - Fall [Recovered/Resolved]
  - Wrong technique in drug usage process [Recovered/Resolved]
  - Gait disturbance [Not Recovered/Not Resolved]
  - Pain [Not Recovered/Not Resolved]
  - Product quality issue [Unknown]
